FAERS Safety Report 4619107-9 (Version None)
Quarter: 2005Q1

REPORT INFORMATION
  Report Type: 
  Country: None (occurrence: None)
  Receive Date: 20050317
  Receipt Date: 20050317
  Transmission Date: 20050727
  Serious: No
  Sender: FDA-Public Use
  Company Number: None

PATIENT
  Age: 49 Year
  Sex: Male

DRUGS (1)
  1. WARFARIN   10MG/DAY  EXCEPT 12.5  M-W-F [Suspect]
     Indication: DEEP VEIN THROMBOSIS
     Dates: start: 20031124, end: 20050316

REACTIONS (6)
  - ALCOHOL USE [None]
  - HAEMATURIA [None]
  - INTERNATIONAL NORMALISED RATIO INCREASED [None]
  - MELAENA [None]
  - SKIN HAEMORRHAGE [None]
  - WOUND [None]
